FAERS Safety Report 24052749 (Version 1)
Quarter: 2024Q3

REPORT INFORMATION
  Report Type: Spontaneous
  Country: US (occurrence: US)
  Receive Date: 20240705
  Receipt Date: 20240705
  Transmission Date: 20241017
  Serious: No
  Sender: ROCHE
  Company Number: US-ROCHE-10000014416

PATIENT
  Sex: Female

DRUGS (26)
  1. XOLAIR [Suspect]
     Active Substance: OMALIZUMAB
     Indication: Product used for unknown indication
     Route: 058
  2. ETHAMBUTOL [Concomitant]
     Active Substance: ETHAMBUTOL HYDROCHLORIDE
  3. PREDNISONE [Concomitant]
     Active Substance: PREDNISONE
  4. RIFABUTIN [Concomitant]
     Active Substance: RIFABUTIN
  5. ZITHROMAX [Concomitant]
     Active Substance: AZITHROMYCIN DIHYDRATE
  6. LEVAQUIN [Concomitant]
     Active Substance: LEVOFLOXACIN
  7. METOLAZONE [Concomitant]
     Active Substance: METOLAZONE
  8. potassium CH [Concomitant]
  9. PROVENTIL [Concomitant]
     Active Substance: ALBUTEROL
  10. Azelastin HCL [Concomitant]
  11. DIAZEPAM [Concomitant]
     Active Substance: DIAZEPAM
  12. dihydroergot [Concomitant]
  13. diphenhydram [Concomitant]
  14. EPIPEN [Concomitant]
     Active Substance: EPINEPHRINE
  15. FLUTICASONE [Concomitant]
     Active Substance: FLUTICASONE
  16. FUROSEMIDE [Concomitant]
     Active Substance: FUROSEMIDE
  17. GABAPENTIN [Concomitant]
     Active Substance: GABAPENTIN
  18. Hydrocholorot [Concomitant]
  19. LISINOPRIL [Concomitant]
     Active Substance: LISINOPRIL
  20. MONTELUKAST [Concomitant]
     Active Substance: MONTELUKAST SODIUM
  21. PROTONIX [Concomitant]
     Active Substance: PANTOPRAZOLE SODIUM
  22. PROZAC [Concomitant]
     Active Substance: FLUOXETINE HYDROCHLORIDE
  23. SYMBICORT [Concomitant]
     Active Substance: BUDESONIDE\FORMOTEROL FUMARATE DIHYDRATE
  24. TYLENOL [Concomitant]
     Active Substance: ACETAMINOPHEN
  25. WELLBUTRIN [Concomitant]
     Active Substance: BUPROPION HYDROCHLORIDE
  26. ZOFRAN [Concomitant]
     Active Substance: ONDANSETRON HYDROCHLORIDE

REACTIONS (3)
  - Pain in extremity [Unknown]
  - Thermal burn [Unknown]
  - Joint range of motion decreased [Unknown]
